FAERS Safety Report 9109328 (Version 2)
Quarter: 2013Q1

REPORT INFORMATION
  Report Type: Spontaneous
  Country: US (occurrence: US)
  Receive Date: 20130222
  Receipt Date: 20130318
  Transmission Date: 20140127
  Serious: No
  Sender: FDA-Public Use
  Company Number: US-PFIZER INC-2013065947

PATIENT
  Age: 80 Year
  Sex: Male
  Weight: 113 kg

DRUGS (5)
  1. GABAPENTIN [Suspect]
     Indication: PAIN IN EXTREMITY
     Dosage: 1200 MG, UNK
     Route: 048
     Dates: start: 2008
  2. GABAPENTIN [Suspect]
     Indication: NEUROPATHY PERIPHERAL
  3. CARBIDOPA [Concomitant]
     Indication: PARKINSON^S DISEASE
     Dosage: 25 MG, UNK
  4. LEVODOPA [Concomitant]
     Indication: PARKINSON^S DISEASE
     Dosage: 100 MG, 4X/DAY
     Route: 048
  5. SPIRIVA ^BOEHRINGER INGELHEIM^ [Concomitant]
     Dosage: UNK

REACTIONS (1)
  - Drug ineffective [Not Recovered/Not Resolved]
